FAERS Safety Report 8323009-4 (Version None)
Quarter: 2012Q2

REPORT INFORMATION
  Report Type: 
  Country: None (occurrence: None)
  Receive Date: 20120430
  Receipt Date: 20120423
  Transmission Date: 20120825
  Serious: Yes (Hospitalization)
  Sender: FDA-Public Use
  Company Number: US-TEVA-335245USA

PATIENT
  Age: 51 Year
  Sex: Female

DRUGS (9)
  1. PHENOBARBITAL TAB [Concomitant]
     Route: 065
  2. PHENYTOIN [Concomitant]
     Route: 065
  3. WARFARIN SODIUM [Concomitant]
     Route: 065
  4. CLORAZEPATE DIPOTASSIUM [Concomitant]
     Route: 065
  5. BACLOFEN [Suspect]
     Indication: OVERDOSE
     Route: 048
  6. DIGOXIN [Concomitant]
     Route: 065
  7. BACLOFEN [Suspect]
     Route: 065
  8. HYDROXYZINE [Concomitant]
     Route: 065
  9. PAROXETINE [Concomitant]
     Route: 065

REACTIONS (4)
  - SUICIDE ATTEMPT [None]
  - OVERDOSE [None]
  - UNRESPONSIVE TO STIMULI [None]
  - COMA [None]
